FAERS Safety Report 17517424 (Version 1)
Quarter: 2020Q1

REPORT INFORMATION
  Report Type: Spontaneous
  Country: US (occurrence: US)
  Receive Date: 20200309
  Receipt Date: 20200309
  Transmission Date: 20200409
  Serious: No
  Sender: FDA-Public Use
  Company Number: US-SA-2020SA059514

PATIENT
  Age: 49 Year
  Sex: Female

DRUGS (6)
  1. LATISSE [Concomitant]
     Active Substance: BIMATOPROST
  2. IMURAN [Concomitant]
     Active Substance: AZATHIOPRINE
  3. PREDNISONE. [Concomitant]
     Active Substance: PREDNISONE
  4. BOTOX [Concomitant]
     Active Substance: ONABOTULINUMTOXINA
  5. DUPIXENT [Suspect]
     Active Substance: DUPILUMAB
     Indication: DERMATITIS ATOPIC
     Dosage: 300 MG, QOW
     Route: 058
     Dates: start: 20191016
  6. CLOBETASOL [Concomitant]
     Active Substance: CLOBETASOL

REACTIONS (2)
  - Dry eye [Not Recovered/Not Resolved]
  - Injection site reaction [Not Recovered/Not Resolved]
